FAERS Safety Report 8757818 (Version 2)
Quarter: 2012Q4

REPORT INFORMATION
  Report Type: 
  Country: NO (occurrence: NO)
  Receive Date: 20120828
  Receipt Date: 20121227
  Transmission Date: 20130627
  Serious: Yes (Disabling)
  Sender: FDA-Public Use
  Company Number: NO-BAYER-2011-025724

PATIENT
  Age: 45 Year
  Sex: Female
  Weight: 71 kg

DRUGS (26)
  1. MAGNEVIST [Suspect]
     Indication: MRI
     Dosage: 15 ml, ONCE
     Route: 042
     Dates: start: 20000303, end: 20000303
  2. MAGNEVIST [Suspect]
     Indication: MRI
     Dosage: 15 ml, ONCE
     Dates: start: 20000719, end: 20000719
  3. MAGNEVIST [Suspect]
     Indication: MRI
     Dosage: 15 ml, ONCE
     Dates: start: 20000926, end: 20000926
  4. MAGNEVIST [Suspect]
     Indication: MRI
     Dosage: UNK UNK, ONCE
     Dates: start: 20010912, end: 20010912
  5. MAGNEVIST [Suspect]
     Indication: MRI
     Dosage: 15 ml, ONCE
     Dates: start: 20020225, end: 20020225
  6. MAGNEVIST [Suspect]
     Indication: MRI
     Dosage: 13 ml, ONCE
     Dates: start: 20050426, end: 20050426
  7. MAGNEVIST [Suspect]
     Indication: MRI
     Dosage: 14 ml, ONCE
     Dates: start: 20060105, end: 20060105
  8. GADOLINIUM [Suspect]
     Indication: IMAGING PROCEDURE
     Dosage: UNK, ONCE
     Dates: start: 20000525, end: 20000525
  9. GADOLINIUM IN [Suspect]
     Indication: IMAGING PROCEDURE
     Dosage: UNK, ONCE
     Dates: start: 20020806, end: 20020806
  10. MULTIHANCE [Suspect]
     Indication: MRI ANGIOGRAPHY
     Dosage: 14 ml, ONCE
     Route: 042
     Dates: start: 20070823, end: 20070823
  11. MULTIHANCE [Suspect]
     Indication: MRI
     Dosage: UNK
     Dates: start: 2008, end: 2008
  12. ADVAGRAF [Concomitant]
     Dosage: 1 DF, UNK
  13. ULTRAVIST [Concomitant]
     Indication: ANGIOGRAPHY
     Dosage: 50 ml, UNK
     Dates: start: 20000310, end: 20000310
  14. MYFORTIC [Concomitant]
     Dosage: 2 DF, UNK
  15. ALBYL-E [Concomitant]
     Dosage: 1 DF, UNK
  16. PREDNISOLON [Concomitant]
     Dosage: 1 DF, UNK
  17. COZAAR [Concomitant]
     Dosage: 1 DF, UNK
     Dates: end: 201106
  18. SOMAC [Concomitant]
     Dosage: 1 DF, UNK
  19. BURINEX [Concomitant]
     Dosage: 2 DF, UNK
  20. ALENDRONATE SODIUM [Concomitant]
     Dosage: 1 DF, OW
  21. HUMALOG [Concomitant]
     Dosage: 2 - 6 IU
  22. LANTUS [Concomitant]
     Dosage: 6 - 6 IU
  23. DETRUSITOL [Concomitant]
     Dosage: 1 DF, UNK
  24. PARACET [Concomitant]
     Dosage: UNK UNK, PRN
  25. VALLERGAN [Concomitant]
     Dosage: UNK UNK, PRN
  26. MULTIVITAMINS [Concomitant]

REACTIONS (12)
  - Nephrogenic systemic fibrosis [Recovered/Resolved with Sequelae]
  - Skin disorder [Recovered/Resolved with Sequelae]
  - Skin tightness [Recovered/Resolved with Sequelae]
  - Skin induration [Recovered/Resolved with Sequelae]
  - Peau d^orange [Recovered/Resolved with Sequelae]
  - Joint contracture [Recovered/Resolved with Sequelae]
  - Joint stiffness [Recovered/Resolved with Sequelae]
  - Ocular icterus [Recovered/Resolved with Sequelae]
  - Skin fibrosis [Recovered/Resolved with Sequelae]
  - Skin discolouration [Recovered/Resolved with Sequelae]
  - Joint range of motion decreased [Recovered/Resolved with Sequelae]
  - Skin hypertrophy [Recovered/Resolved with Sequelae]
